FAERS Safety Report 8838285 (Version 1)
Quarter: 2012Q4

REPORT INFORMATION
  Report Type: 
  Country: US (occurrence: US)
  Receive Date: 20121012
  Receipt Date: 20121012
  Transmission Date: 20130627
  Serious: Yes (Hospitalization)
  Sender: FDA-Public Use
  Company Number: US-GLAXOSMITHKLINE-A0776273A

PATIENT
  Age: 72 Year
  Sex: Male

DRUGS (1)
  1. AVANDIA [Suspect]
     Indication: DIABETES MELLITUS
     Route: 048
     Dates: start: 1988

REACTIONS (4)
  - Cardiac failure congestive [Not Recovered/Not Resolved]
  - Renal injury [Unknown]
  - Dialysis [Unknown]
  - Myocardial ischaemia [Unknown]
